FAERS Safety Report 11079993 (Version 2)
Quarter: 2015Q3

REPORT INFORMATION
  Report Type: Report from Study
  Country: CA (occurrence: CA)
  Receive Date: 20150430
  Receipt Date: 20150702
  Transmission Date: 20151125
  Serious: Yes (Hospitalization)
  Sender: FDA-Public Use
  Company Number: PHHY2015CA052644

PATIENT
  Age: 56 Year
  Sex: Female

DRUGS (1)
  1. CLOZARIL [Suspect]
     Active Substance: CLOZAPINE
     Indication: PRODUCT USED FOR UNKNOWN INDICATION
     Route: 048
     Dates: start: 20080214

REACTIONS (5)
  - Somnolence [Unknown]
  - Lethargy [Unknown]
  - Infection [Unknown]
  - Antipsychotic drug level above therapeutic [Unknown]
  - Confusional state [Unknown]

NARRATIVE: CASE EVENT DATE: 20150625
